FAERS Safety Report 8614291-4 (Version None)
Quarter: 2012Q3

REPORT INFORMATION
  Report Type: 
  Country: None (occurrence: None)
  Receive Date: 20120813
  Receipt Date: 20120813
  Transmission Date: 20120928
  Serious: Yes (Hospitalization)
  Sender: FDA-Public Use
  Company Number: None

PATIENT
  Sex: Male
  Weight: 79.8331 kg

DRUGS (13)
  1. SORAFENIB 400MG PO BID [Suspect]
     Indication: HEPATIC NEOPLASM MALIGNANT
     Dosage: 400 MG BID PO
     Route: 048
     Dates: start: 20120629
  2. TRAZODONE HYDROCHLORIDE [Concomitant]
  3. VITAMIN B COMPLEX CAP [Concomitant]
  4. XANAX [Concomitant]
  5. BYSTOLIC [Concomitant]
  6. LYRICA [Concomitant]
  7. DURAGESIC-100 [Concomitant]
  8. ALLOPURINOL [Concomitant]
  9. NEXIUM [Concomitant]
  10. PRENATAL PLUS [Concomitant]
  11. MIRALAX [Concomitant]
  12. EFFEXOR [Concomitant]
  13. OXYCODONE HCL [Concomitant]

REACTIONS (1)
  - HYPERTENSION [None]
